FAERS Safety Report 13367271 (Version 1)
Quarter: 2017Q1

REPORT INFORMATION
  Report Type: Spontaneous
  Country: US (occurrence: US)
  Receive Date: 20170324
  Receipt Date: 20170324
  Transmission Date: 20170429
  Serious: Yes (Other)
  Sender: FDA-Public Use
  Company Number: US-LPDUSPRD-20170312

PATIENT

DRUGS (2)
  1. SORAFENIB [Suspect]
     Active Substance: SORAFENIB
     Dosage: UNKNOWN
     Route: 065
  2. PAMIDRONATE DISODIUM INJECTION (0745-01) [Suspect]
     Active Substance: PAMIDRONATE DISODIUM
     Dosage: UNKNOWN
     Route: 065

REACTIONS (2)
  - Osteonecrosis [Unknown]
  - Jaw fracture [Unknown]
